FAERS Safety Report 4433982-2 (Version None)
Quarter: 2004Q3

REPORT INFORMATION
  Report Type: 
  Country: None (occurrence: None)
  Receive Date: 20040825
  Receipt Date: 20040825
  Transmission Date: 20050211
  Serious: Yes (Disabling)
  Sender: FDA-Public Use
  Company Number: None

PATIENT
  Age: 31 Year
  Sex: Female
  Weight: 90.7194 kg

DRUGS (4)
  1. PREDNISONE [Suspect]
     Indication: ASTHMA
     Dosage: 5 MGS TWICE A DA ORAL
     Route: 048
     Dates: start: 19850101, end: 19990101
  2. PREDNISONE [Suspect]
     Indication: ENDOMETRIOSIS
     Dosage: 5 MGS TWICE A DA ORAL
     Route: 048
     Dates: start: 19850101, end: 19990101
  3. PREDNISONE [Suspect]
     Indication: MIGRAINE
     Dosage: 5 MGS TWICE A DA ORAL
     Route: 048
     Dates: start: 19850101, end: 19990101
  4. DELATSON [Suspect]
     Dosage: 40 MGS THREE TIME ORAL
     Route: 048
     Dates: start: 20000101, end: 20020101

REACTIONS (1)
  - ASEPTIC NECROSIS BONE [None]
